FAERS Safety Report 5025208-6 (Version None)
Quarter: 2006Q2

REPORT INFORMATION
  Report Type: 
  Country: None (occurrence: None)
  Receive Date: 20060613
  Receipt Date: 20060505
  Transmission Date: 20061013
  Serious: Yes (Hospitalization)
  Sender: FDA-Public Use
  Company Number: DE-GLAXOSMITHKLINE-D0049633A

PATIENT
  Age: 70 Year
  Sex: Male
  Weight: 70 kg

DRUGS (5)
  1. REQUIP [Suspect]
     Indication: PARKINSON'S DISEASE
     Dosage: .5MG THREE TIMES PER DAY
     Route: 048
     Dates: start: 20050105
  2. MADOPAR [Concomitant]
     Indication: PARKINSON'S DISEASE
     Dosage: .5TAB THREE TIMES PER DAY
     Route: 065
     Dates: start: 20050101
  3. XUSAL [Concomitant]
     Route: 065
  4. PANTOZOL [Concomitant]
     Dosage: 1TAB AT NIGHT
     Route: 065
  5. URBASON [Concomitant]
     Route: 065

REACTIONS (3)
  - DERMATITIS EXFOLIATIVE [None]
  - IMPETIGO [None]
  - SEBORRHOEIC DERMATITIS [None]
